FAERS Safety Report 20756299 (Version 3)
Quarter: 2022Q2

REPORT INFORMATION
  Report Type: Spontaneous
  Country: JP (occurrence: JP)
  Receive Date: 20220427
  Receipt Date: 20220604
  Transmission Date: 20220720
  Serious: Yes (Hospitalization)
  Sender: FDA-Public Use
  Company Number: JP-002147023-NVSJ2022JP005001

PATIENT
  Sex: Female
  Weight: 58 kg

DRUGS (5)
  1. XOLAIR [Suspect]
     Active Substance: OMALIZUMAB
     Indication: Asthma
     Dosage: 450 MG
     Route: 058
     Dates: start: 20181114, end: 20220307
  2. ETIZOLAM [Concomitant]
     Active Substance: ETIZOLAM
     Indication: Insomnia
     Dosage: 0.5 MG, QD
     Route: 048
     Dates: start: 20210726
  3. FLUNITRAZEPAM [Concomitant]
     Active Substance: FLUNITRAZEPAM
     Indication: Insomnia
     Dosage: 1 MG, QD
     Route: 048
     Dates: start: 20210726
  4. ROSUVASTATIN [Concomitant]
     Active Substance: ROSUVASTATIN
     Indication: Hyperlipidaemia
     Dosage: 2.5 MG, QD
     Route: 048
     Dates: start: 20210726
  5. SYMBICORT [Concomitant]
     Active Substance: BUDESONIDE\FORMOTEROL FUMARATE DIHYDRATE
     Indication: Asthma prophylaxis
     Dosage: 10 INHALATION, BID
     Dates: start: 20181019

REACTIONS (4)
  - Osteoarthritis [Unknown]
  - Hypertension [Unknown]
  - Diabetes mellitus inadequate control [Recovering/Resolving]
  - Asthma [Unknown]

NARRATIVE: CASE EVENT DATE: 20220104
